FAERS Safety Report 5803418-5 (Version None)
Quarter: 2008Q2

REPORT INFORMATION
  Report Type: 
  Country: None (occurrence: None)
  Receive Date: 20080627
  Receipt Date: 20080226
  Transmission Date: 20081010
  Serious: Yes (Other)
  Sender: FDA-Public Use
  Company Number: 551099

PATIENT
  Age: 49 Year
  Sex: Male

DRUGS (3)
  1. INTERFERON ALFA [Suspect]
     Indication: CHOROIDAL NEOVASCULARISATION
     Dosage: 3 PER WEEK SUBCUTANEOUS
     Route: 058
  2. INTERFERON ALFA [Suspect]
     Indication: PSEUDOXANTHOMA ELASTICUM
     Dosage: 3 PER WEEK SUBCUTANEOUS
     Route: 058
  3. ANTIHYPERTENSIVE AGENTS (ANTIHYPERTENSIVE AGENTS) [Concomitant]

REACTIONS (3)
  - FATIGUE [None]
  - RETINOPATHY [None]
  - WEIGHT DECREASED [None]
